FAERS Safety Report 9742598 (Version 1)
Quarter: 2013Q4

REPORT INFORMATION
  Report Type: Spontaneous
  Country: US (occurrence: US)
  Receive Date: 20131210
  Receipt Date: 20131210
  Transmission Date: 20140711
  Serious: No
  Sender: FDA-Public Use
  Company Number: US-GILEAD-2009-0024617

PATIENT
  Sex: Female
  Weight: 122.47 kg

DRUGS (15)
  1. LETAIRIS [Suspect]
     Indication: PULMONARY ARTERIAL HYPERTENSION
     Route: 048
     Dates: start: 20090722
  2. ACIPHEX [Concomitant]
  3. ALPRAZOLAM [Concomitant]
  4. MUCOMYST [Concomitant]
  5. ALBUTEROL [Concomitant]
  6. REVATIO [Concomitant]
  7. CARDIZEM LA [Concomitant]
  8. NASONEX [Concomitant]
  9. PULMICORT [Concomitant]
  10. ATROVENT INH [Concomitant]
  11. ASPIRIN [Concomitant]
  12. OXYCODONE-APAP [Concomitant]
  13. PERFOROMIST [Concomitant]
  14. POTASSIUM CL [Concomitant]
  15. MULTIVITAMINS [Concomitant]

REACTIONS (2)
  - Trichorrhexis [Unknown]
  - Sinusitis [Unknown]
